FAERS Safety Report 23683307 (Version 2)
Quarter: 2024Q2

REPORT INFORMATION
  Report Type: Spontaneous
  Country: US (occurrence: US)
  Receive Date: 20240328
  Receipt Date: 20240409
  Transmission Date: 20240716
  Serious: Yes (Hospitalization)
  Sender: FDA-Public Use
  Company Number: US-BRISTOL-MYERS SQUIBB COMPANY-2024-049564

PATIENT
  Age: 44 Year
  Sex: Female

DRUGS (1)
  1. POMALYST [Suspect]
     Active Substance: POMALIDOMIDE
     Indication: Plasma cell myeloma
     Dosage: FREQUENCY: TAKE 1 CAPSULE WHOLE BY MOUTH EVERY MORNING FOR 21 DAYS, THEN OFF FOR 7 DAYS FOR A 28 DAY
     Route: 048

REACTIONS (1)
  - Gastroenteritis bacterial [Recovered/Resolved]
